FAERS Safety Report 9432211 (Version 1)
Quarter: 2013Q3

REPORT INFORMATION
  Report Type: Report from Study
  Country: US (occurrence: US)
  Receive Date: 20130731
  Receipt Date: 20130731
  Transmission Date: 20140515
  Serious: Yes (Hospitalization)
  Sender: FDA-Public Use
  Company Number: PHEH2013US015941

PATIENT
  Age: 52 Year
  Sex: Female
  Weight: 74.38 kg

DRUGS (6)
  1. TASIGNA [Suspect]
     Dosage: 150 MG, BID
     Route: 048
  2. ESTRATEST [Concomitant]
     Route: 048
  3. AMBIEN CR [Concomitant]
     Route: 048
  4. MAGNESIUM [Concomitant]
     Dosage: 300 MG, UNK
     Route: 048
  5. ASPIRINA ADULTOS [Concomitant]
     Dosage: 81 MG, UNK
     Route: 048
  6. LISINOPRIL [Concomitant]
     Dosage: 10 MG, UNK
     Route: 048

REACTIONS (1)
  - Thrombosis [Unknown]
